FAERS Safety Report 4940807-5 (Version None)
Quarter: 2006Q1

REPORT INFORMATION
  Report Type: 
  Country: None (occurrence: None)
  Receive Date: 20060313
  Receipt Date: 20060228
  Transmission Date: 20060701
  Serious: Yes (Life-Threatening, Hospitalization)
  Sender: FDA-Public Use
  Company Number: PHFR2006GB01003

PATIENT
  Age: 37 Year
  Sex: Male

DRUGS (6)
  1. ELIDEL [Suspect]
     Indication: VASCULITIC RASH
     Dosage: BID
     Route: 061
     Dates: start: 20041201
  2. SPIRONOLACTONE [Concomitant]
     Indication: CARDIOMYOPATHY
     Dosage: 25MG DAILY
     Route: 048
     Dates: start: 20050201
  3. WARFARIN [Concomitant]
     Indication: ATRIAL FIBRILLATION
     Route: 048
     Dates: start: 20050901, end: 20060201
  4. FUROSEMIDE [Concomitant]
     Indication: CARDIOMYOPATHY
     Dosage: 40MG DAILY
     Route: 048
     Dates: start: 20050201
  5. RAMIPRIL [Concomitant]
     Indication: CARDIOMYOPATHY
     Dosage: 5MG DAILY
     Route: 048
     Dates: start: 20050201
  6. PREDNISOLONE [Concomitant]
     Indication: CUTANEOUS VASCULITIS
     Dosage: 5-40MG DAILY
     Route: 048
     Dates: start: 20050901

REACTIONS (4)
  - BIOPSY KIDNEY ABNORMAL [None]
  - NEPHRITIS INTERSTITIAL [None]
  - RENAL FAILURE [None]
  - RENAL TUBULAR DISORDER [None]
